FAERS Safety Report 5451682-7 (Version None)
Quarter: 2007Q3

REPORT INFORMATION
  Report Type: 
  Country: None (occurrence: None)
  Receive Date: 20070803
  Receipt Date: 20070504
  Transmission Date: 20080115
  Serious: Yes (Other)
  Sender: FDA-Public Use
  Company Number: 36805

PATIENT
  Age: 76 Year
  Sex: Male
  Weight: 78.0187 kg

DRUGS (4)
  1. PROPOFOL [Suspect]
     Indication: ANAESTHESIA
     Dosage: 70MG/OVER10MIN/IV
     Route: 042
     Dates: start: 20070503
  2. FLOMAX [Concomitant]
  3. SIMVASTIN [Concomitant]
  4. NABUMETONE [Concomitant]

REACTIONS (3)
  - FATIGUE [None]
  - MALAISE [None]
  - PYREXIA [None]
